FAERS Safety Report 15615540 (Version 1)
Quarter: 2018Q4

REPORT INFORMATION
  Report Type: Spontaneous
  Country: FR (occurrence: FR)
  Receive Date: 20181114
  Receipt Date: 20181114
  Transmission Date: 20190205
  Serious: Yes (Hospitalization)
  Sender: FDA-Public Use
  Company Number: FR-ACCORD-092368

PATIENT
  Age: 48 Year
  Sex: Female
  Weight: 64.2 kg

DRUGS (3)
  1. METHOTREXATE. [Suspect]
     Active Substance: METHOTREXATE
     Indication: RHEUMATOID ARTHRITIS
     Dosage: 10 MG NOV-2015 TO FEB-2018
     Route: 048
     Dates: start: 20180522
  2. ETANERCEPT ((MAMMIFERE/HAMSTER/CELLULES CHO)) [Suspect]
     Active Substance: ETANERCEPT
     Indication: RHEUMATOID ARTHRITIS
     Route: 058
     Dates: start: 20180522, end: 201807
  3. ETANERCEPT [Suspect]
     Active Substance: ETANERCEPT
     Indication: RHEUMATOID ARTHRITIS
     Dosage: ALSO RECEIVED ON 22-MAY-2018 TO JUL-2018, 50 MG DOSE VIA SUBCUTANEOUS ROUTE.
     Route: 058
     Dates: start: 201511, end: 201802

REACTIONS (1)
  - Plasma cell myeloma [Not Recovered/Not Resolved]

NARRATIVE: CASE EVENT DATE: 201807
